FAERS Safety Report 9422061 (Version 1)
Quarter: 2013Q3

REPORT INFORMATION
  Report Type: Spontaneous
  Country: US (occurrence: None)
  Receive Date: 20130725
  Receipt Date: 20130725
  Transmission Date: 20140515
  Serious: Yes (Life-Threatening, Hospitalization)
  Sender: FDA-Public Use
  Company Number: None

PATIENT
  Age: 29 None
  Sex: Female

DRUGS (4)
  1. LOESTRIN 24 FE [Suspect]
     Indication: CONTRACEPTION
     Route: 048
     Dates: start: 20121226, end: 20130213
  2. ZYRTEC [Suspect]
  3. PARAGARD IUD [Concomitant]
  4. HYDROZYZINE [Concomitant]

REACTIONS (3)
  - Thrombosis [None]
  - Pulmonary thrombosis [None]
  - Medical device complication [None]
